FAERS Safety Report 5279850-8 (Version None)
Quarter: 2007Q1

REPORT INFORMATION
  Report Type: 
  Country: None (occurrence: None)
  Receive Date: 20061218
  Receipt Date: 20060712
  Transmission Date: 20070707
  Serious: Yes (Other)
  Sender: FDA-Public Use
  Company Number: US200606003585

PATIENT
  Age: 40 Year
  Sex: Male

DRUGS (8)
  1. HUMULIN R [Suspect]
     Indication: DIABETES MELLITUS
  2. ATENOLOL [Concomitant]
  3. CIPRO [Concomitant]
  4. B-COMPLEX (VITAMIN B NOS) [Concomitant]
  5. ENALAPRIL MALEATE [Concomitant]
  6. POTASSIUM (POTASSIUM) [Concomitant]
  7. METRONIDAZOLE [Concomitant]
  8. ERYTHROMYCIN [Concomitant]

REACTIONS (2)
  - BLOOD GLUCOSE INCREASED [None]
  - DRUG INEFFECTIVE [None]
